FAERS Safety Report 11305883 (Version 3)
Quarter: 2015Q3

REPORT INFORMATION
  Report Type: Report from Study
  Country: JP (occurrence: JP)
  Receive Date: 20150723
  Receipt Date: 20150813
  Transmission Date: 20151125
  Serious: Yes (Hospitalization)
  Sender: FDA-Public Use
  Company Number: PHJP2015JP012417

PATIENT
  Age: 51 Year
  Sex: Male
  Weight: 60 kg

DRUGS (17)
  1. MAGMITT [Concomitant]
     Active Substance: MAGNESIUM OXIDE
     Indication: CONSTIPATION PROPHYLAXIS
     Dosage: 330 MG, TID
     Route: 048
     Dates: start: 20140917
  2. LDK378 [Suspect]
     Active Substance: CERITINIB
     Dosage: 600 MG, QD
     Route: 048
     Dates: start: 20140416, end: 20140512
  3. LDK378 [Suspect]
     Active Substance: CERITINIB
     Dosage: 450 MG, QD
     Route: 048
     Dates: start: 20141225
  4. EXCEGRAN [Concomitant]
     Active Substance: ZONISAMIDE
     Indication: CONVULSION PROPHYLAXIS
     Dosage: 100 MG, TID
     Route: 048
     Dates: start: 20140512
  5. BESOFTEN [Concomitant]
     Active Substance: SODIUM ALGINATE
     Indication: DERMATITIS
     Dosage: UNK
     Route: 065
     Dates: start: 20140827
  6. LAMISIL 1 [Concomitant]
     Indication: RASH
     Dosage: UNK
     Route: 065
     Dates: start: 20140815
  7. OXINORM                            /07623501/ [Concomitant]
     Indication: COMPRESSION FRACTURE
     Dosage: 2.5 MG, PRN
     Route: 048
     Dates: start: 20150212
  8. LDK378 [Suspect]
     Active Substance: CERITINIB
     Indication: LUNG NEOPLASM MALIGNANT
     Dosage: 750 MG, QD
     Route: 048
     Dates: start: 20140107, end: 20150307
  9. DECADRON [Concomitant]
     Active Substance: DEXAMETHASONE
     Indication: PROPHYLAXIS
     Dosage: 1.5 MG, QD
     Route: 048
     Dates: start: 20140520
  10. TRAMCET [Concomitant]
     Active Substance: ACETAMINOPHEN\TRAMADOL
     Indication: BACK PAIN
  11. DOCETAXEL. [Concomitant]
     Active Substance: DOCETAXEL
     Dosage: 115 MG, UNK
     Route: 065
     Dates: start: 20131204, end: 20131204
  12. OXINORM                            /07623501/ [Concomitant]
     Indication: BACK PAIN
  13. DOCETAXEL. [Concomitant]
     Active Substance: DOCETAXEL
     Indication: PRODUCT USED FOR UNKNOWN INDICATION
     Dosage: 115 MG, UNK
     Route: 065
     Dates: start: 20131113, end: 20131113
  14. NEXIUM 1-2-3 [Concomitant]
     Active Substance: AMOXICILLIN\CLARITHROMYCIN\ESOMEPRAZOLE
     Indication: PROPHYLAXIS AGAINST GASTROINTESTINAL ULCER
     Dosage: 20 MG, QD
     Route: 048
     Dates: start: 20130313
  15. DEPAKENE [Concomitant]
     Active Substance: VALPROIC ACID
     Indication: CONVULSION PROPHYLAXIS
     Dosage: 400 MG, TID
     Route: 048
     Dates: start: 20140815
  16. SULFAMETHOXAZOLE AND TRIMETHOPRIM [Concomitant]
     Active Substance: SULFAMETHOXAZOLE\TRIMETHOPRIM
     Indication: INFECTION PROPHYLAXIS
     Dosage: 1 DF, QD
     Route: 048
     Dates: start: 20140522
  17. TRAMCET [Concomitant]
     Active Substance: ACETAMINOPHEN\TRAMADOL
     Indication: COMPRESSION FRACTURE
     Dosage: 1 DF, TID
     Route: 048
     Dates: start: 20141115

REACTIONS (1)
  - Seizure [Recovered/Resolved]

NARRATIVE: CASE EVENT DATE: 20150718
